FAERS Safety Report 20968903 (Version 1)
Quarter: 2022Q2

REPORT INFORMATION
  Report Type: Spontaneous
  Country: US (occurrence: None)
  Receive Date: 20220616
  Receipt Date: 20220616
  Transmission Date: 20220720
  Serious: Yes (Other)
  Sender: FDA-Public Use
  Company Number: None

PATIENT
  Age: 74 Year
  Sex: Female
  Weight: 47.7 kg

DRUGS (11)
  1. LEVOFLOXACIN HYDROCHLORIDE [Suspect]
     Active Substance: LEVOFLOXACIN HYDROCHLORIDE
     Indication: Localised infection
     Dosage: OTHER QUANTITY : 1 UNKNOWN;?FREQUENCY : DAILY;?
     Route: 042
     Dates: start: 20220211, end: 20220318
  2. alprazolam .25mg  BID [Concomitant]
  3. asprin 81mg daily [Concomitant]
  4. vitamin B-12 1000mcg per ml  1ML IM monthly [Concomitant]
  5. prolea 1 ML q 6 mos [Concomitant]
  6. lomotil 1-2 tab  4 times daily [Concomitant]
  7. folic acid 1 tab daily [Concomitant]
  8. lasix 20  mg 2 tabs daily [Concomitant]
  9. prevacid 30mg daily [Concomitant]
  10. methadone 10mg 1 tab q 4 hrs prn [Concomitant]
  11. gabapentin 600mg BID [Concomitant]

REACTIONS (3)
  - Feeling abnormal [None]
  - Diplopia [None]
  - Ophthalmoplegia [None]

NARRATIVE: CASE EVENT DATE: 20220211
